FAERS Safety Report 16500374 (Version 1)
Quarter: 2019Q3

REPORT INFORMATION
  Report Type: Spontaneous
  Country: US (occurrence: US)
  Receive Date: 20190701
  Receipt Date: 20190701
  Transmission Date: 20191004
  Serious: Yes (Death, Life-Threatening, Other)
  Sender: FDA-Public Use
  Company Number: US-HIKMA PHARMACEUTICALS USA INC.-US-H14001-19-45805

PATIENT
  Age: 32 Year
  Sex: Female

DRUGS (4)
  1. VINCRISTINE [Suspect]
     Active Substance: VINCRISTINE
     Indication: ACUTE LYMPHOCYTIC LEUKAEMIA
     Dosage: SALVAGE CHEMOTHERAPY
     Route: 065
  2. DEXAMETHASONE. [Suspect]
     Active Substance: DEXAMETHASONE
     Indication: ACUTE LYMPHOCYTIC LEUKAEMIA
     Dosage: SALVAGE CHEMOTHERAPY
     Route: 065
  3. METHOTREXATE. [Suspect]
     Active Substance: METHOTREXATE
     Indication: ACUTE LYMPHOCYTIC LEUKAEMIA
     Dosage: SALVAGE CHEMOTHERAPY
     Route: 065
  4. PEGASPARGASE [Suspect]
     Active Substance: PEGASPARGASE
     Indication: ACUTE LYMPHOCYTIC LEUKAEMIA
     Dosage: SALVAGE CHEMOTHERAPY
     Route: 065

REACTIONS (7)
  - Hyperammonaemia [Fatal]
  - Ureaplasma infection [Fatal]
  - Perirectal abscess [Unknown]
  - Stenotrophomonas infection [Unknown]
  - Febrile neutropenia [Unknown]
  - Escherichia infection [Unknown]
  - Bacteraemia [Unknown]
